FAERS Safety Report 6362168-X (Version None)
Quarter: 2009Q3

REPORT INFORMATION
  Report Type: 
  Country: None (occurrence: None)
  Receive Date: 20090918
  Receipt Date: 20090915
  Transmission Date: 20100115
  Serious: Yes (Other)
  Sender: FDA-Public Use
  Company Number: ES-MERCK-0904ESP00070

PATIENT
  Age: 53 Year
  Sex: Female
  Weight: 58 kg

DRUGS (6)
  1. ISENTRESS [Suspect]
     Indication: VIROLOGIC FAILURE
     Route: 048
     Dates: start: 20090304, end: 20090323
  2. ISENTRESS [Suspect]
     Indication: DRUG HYPERSENSITIVITY
     Route: 048
     Dates: start: 20090304, end: 20090323
  3. ESCITALOPRAM [Concomitant]
     Indication: DEPRESSION
     Route: 048
     Dates: start: 20090323
  4. EMTRICITABINE [Concomitant]
     Route: 048
     Dates: start: 20090304
  5. ATAZANAVIR [Concomitant]
     Route: 048
     Dates: start: 20090304
  6. RITONAVIR [Concomitant]
     Route: 048
     Dates: start: 20090304

REACTIONS (1)
  - PSYCHOTIC DISORDER [None]
